FAERS Safety Report 8529646-6 (Version None)
Quarter: 2012Q2

REPORT INFORMATION
  Report Type: 
  Country: None (occurrence: None)
  Receive Date: 20120410
  Receipt Date: 20120228
  Transmission Date: 20120825
  Serious: Yes (Other)
  Sender: FDA-Public Use
  Company Number: 2012-00373

PATIENT
  Age: 50 Year
  Sex: Male
  Weight: 72.5755 kg

DRUGS (1)
  1. LEVETIRACETAM [Suspect]
     Indication: EPILEPSY
     Dosage: 3000 MG (750 MG, TWO 750 MG TABLETS TWO TIMES A DAY, PER ORAL
     Route: 048
     Dates: start: 20111101

REACTIONS (1)
  - DRUG INEFFECTIVE [None]
